FAERS Safety Report 9181455 (Version 1)
Quarter: 2013Q1

REPORT INFORMATION
  Report Type: Spontaneous
  Country: US (occurrence: US)
  Receive Date: 20130322
  Receipt Date: 20130322
  Transmission Date: 20140127
  Serious: Yes (Other)
  Sender: FDA-Public Use
  Company Number: US-BRISTOL-MYERS SQUIBB COMPANY-17477845

PATIENT
  Sex: Female

DRUGS (3)
  1. COUMADIN [Suspect]
     Route: 048
  2. CRANBERRY JUICE [Concomitant]
  3. VITAMIN K [Concomitant]

REACTIONS (1)
  - Post procedural complication [Not Recovered/Not Resolved]
